FAERS Safety Report 5984059-6 (Version None)
Quarter: 2008Q4

REPORT INFORMATION
  Report Type: 
  Country: None (occurrence: None)
  Receive Date: 20081208
  Receipt Date: 20081203
  Transmission Date: 20090506
  Serious: Yes (Hospitalization)
  Sender: FDA-Public Use
  Company Number: US-ASTRAZENECA-2008UW26960

PATIENT
  Age: 82 Year
  Sex: Female
  Weight: 86.2 kg

DRUGS (1)
  1. ARIMIDEX [Suspect]
     Indication: BREAST CANCER
     Route: 048
     Dates: start: 20050101

REACTIONS (7)
  - BLOOD CHOLESTEROL INCREASED [None]
  - DIABETES MELLITUS [None]
  - ENDOMETRIOSIS [None]
  - HEARING IMPAIRED [None]
  - HEART RATE DECREASED [None]
  - HYPERTENSION [None]
  - MULTIPLE FRACTURES [None]
